FAERS Safety Report 6413103-7 (Version None)
Quarter: 2009Q4

REPORT INFORMATION
  Report Type: 
  Country: None (occurrence: None)
  Receive Date: 20091022
  Receipt Date: 20091022
  Transmission Date: 20100525
  Serious: Yes (Death)
  Sender: FDA-Public Use
  Company Number: None

PATIENT
  Sex: Female
  Weight: 58.0604 kg

DRUGS (2)
  1. ZYPREXA [Suspect]
     Indication: SCHIZOPHRENIA
     Dates: start: 20090601, end: 20090818
  2. ZYPREXA [Suspect]

REACTIONS (3)
  - DIABETIC KETOACIDOSIS [None]
  - PAIN [None]
  - SOMNOLENCE [None]
